FAERS Safety Report 20443497 (Version 1)
Quarter: 2022Q1

REPORT INFORMATION
  Report Type: Spontaneous
  Country: US (occurrence: None)
  Receive Date: 20220208
  Receipt Date: 20220208
  Transmission Date: 20220424
  Serious: No
  Sender: FDA-Public Use
  Company Number: None

PATIENT
  Age: 62 Year
  Sex: Female
  Weight: 141.52 kg

DRUGS (1)
  1. CLARITHROMYCIN [Suspect]
     Active Substance: CLARITHROMYCIN
     Indication: Infection
     Dosage: FREQUENCY : DAILY;?
     Route: 048
     Dates: start: 20210924, end: 20211108

REACTIONS (1)
  - Taste disorder [None]

NARRATIVE: CASE EVENT DATE: 20211108
